FAERS Safety Report 6817693-1 (Version None)
Quarter: 2010Q3

REPORT INFORMATION
  Report Type: 
  Country: None (occurrence: None)
  Receive Date: 20100706
  Receipt Date: 20100628
  Transmission Date: 20110219
  Serious: Yes (Hospitalization)
  Sender: FDA-Public Use
  Company Number: ES-PFIZER INC-2010081527

PATIENT
  Age: 79 Year
  Sex: Male

DRUGS (6)
  1. AMLODIPINE BESYLATE [Suspect]
     Dosage: 10 MG, 1X/DAY
     Route: 048
     Dates: start: 20080101, end: 20100315
  2. EMCONCOR COR [Interacting]
     Dosage: 2.5 MG, UNK
     Route: 048
     Dates: start: 20080101, end: 20100315
  3. TERTENSIF - SLOW RELEASE [Concomitant]
     Dosage: 1.5 MG, 1X/DAY
     Route: 048
     Dates: end: 20100315
  4. BELMAZOL [Concomitant]
     Dosage: 10 MG, UNK
     Route: 048
     Dates: end: 20100315
  5. SIMVASTATIN [Concomitant]
     Dosage: 10 MG, UNK
     Route: 048
     Dates: end: 20100315
  6. SINTROM [Concomitant]
     Dosage: UNK
     Route: 048
     Dates: end: 20100315

REACTIONS (4)
  - ATRIAL FIBRILLATION [None]
  - BRADYCARDIA [None]
  - DRUG INTERACTION [None]
  - HYPOTENSION [None]
